FAERS Safety Report 8830185 (Version 1)
Quarter: 2012Q4

REPORT INFORMATION
  Report Type: Spontaneous
  Country: US (occurrence: None)
  Receive Date: 20121009
  Receipt Date: 20121009
  Transmission Date: 20130627
  Serious: Yes (Other)
  Sender: FDA-Public Use
  Company Number: None

PATIENT
  Age: 37 Year
  Sex: Female
  Weight: 56.7 kg

DRUGS (1)
  1. DEPO-MEDROL [Suspect]
     Indication: NEURITIS
     Dosage: 20mg 1 sq
     Route: 058
     Dates: start: 20120808, end: 20120808

REACTIONS (4)
  - Pain [None]
  - Pyrexia [None]
  - Malaise [None]
  - Product quality issue [None]
